FAERS Safety Report 11404639 (Version 2)
Quarter: 2015Q3

REPORT INFORMATION
  Report Type: Spontaneous
  Country: US (occurrence: US)
  Receive Date: 20150821
  Receipt Date: 20150923
  Transmission Date: 20151125
  Serious: No
  Sender: FDA-Public Use
  Company Number: US-ASTRAZENECA-2015SE77941

PATIENT
  Sex: Male

DRUGS (1)
  1. PULMICORT TURBUHALER [Suspect]
     Active Substance: BUDESONIDE
     Indication: PULMONARY CONGESTION
     Route: 055
     Dates: start: 20150808

REACTIONS (4)
  - Product use issue [Unknown]
  - Tourette^s disorder [Unknown]
  - Device malfunction [Unknown]
  - Underdose [Unknown]
